FAERS Safety Report 10096739 (Version 2)
Quarter: 2014Q2

REPORT INFORMATION
  Report Type: Spontaneous
  Country: GB (occurrence: GB)
  Receive Date: 20140422
  Receipt Date: 20140430
  Transmission Date: 20141212
  Serious: Yes (Death)
  Sender: FDA-Public Use
  Company Number: PHHY2014GB048180

PATIENT
  Age: 54 Year
  Sex: Female

DRUGS (5)
  1. ADOPORT [Suspect]
     Route: 048
  2. ADOPORT [Suspect]
     Dosage: 1 MG, UNK
     Route: 065
  3. AZATHIOPRINE [Suspect]
     Route: 048
  4. AZATHIOPRINE [Suspect]
     Dosage: 50 MG, UNK
     Route: 065
  5. PREDNISOLONE [Suspect]
     Dosage: 1 MG, UNK
     Route: 065

REACTIONS (1)
  - Death [Fatal]
